FAERS Safety Report 20056787 (Version 1)
Quarter: 2021Q4

REPORT INFORMATION
  Report Type: Spontaneous
  Country: US (occurrence: US)
  Receive Date: 20211111
  Receipt Date: 20211111
  Transmission Date: 20220303
  Serious: Yes (Other)
  Sender: FDA-Public Use
  Company Number: US-JNJFOC-20211102717

PATIENT
  Age: 66 Year
  Sex: Male
  Weight: 99.8 kg

DRUGS (7)
  1. OPSUMIT [Suspect]
     Active Substance: MACITENTAN
     Indication: Product used for unknown indication
     Route: 048
  2. TYVASO [Suspect]
     Active Substance: TREPROSTINIL
     Indication: Pulmonary hypertension
     Dosage: 18-54 G (3-9 BREATHS)
     Dates: start: 20210908
  3. TYVASO [Suspect]
     Active Substance: TREPROSTINIL
     Dosage: 60-120 G (10-20 BREATHS)
     Dates: start: 202109, end: 202109
  4. TYVASO [Suspect]
     Active Substance: TREPROSTINIL
     Dosage: 18-72 G (3-12 BREATHS),
     Dates: start: 2021, end: 20211017
  5. TYVASO [Suspect]
     Active Substance: TREPROSTINIL
     Dates: start: 202109
  6. IMURAN [Suspect]
     Active Substance: AZATHIOPRINE
     Indication: Product used for unknown indication
     Route: 065
  7. PREDNISONE [Suspect]
     Active Substance: PREDNISONE
     Indication: Product used for unknown indication
     Route: 065

REACTIONS (9)
  - Lung neoplasm [Unknown]
  - Pulmonary fibrosis [Unknown]
  - Malignant melanoma [Unknown]
  - Leukopenia [Unknown]
  - Anaemia [Unknown]
  - Oxygen saturation decreased [Unknown]
  - Throat irritation [Unknown]
  - Muscular weakness [Unknown]
  - Respiratory tract irritation [Unknown]

NARRATIVE: CASE EVENT DATE: 20210101
